FAERS Safety Report 9761293 (Version 1)
Quarter: 2013Q4

REPORT INFORMATION
  Report Type: Spontaneous
  Country: US (occurrence: US)
  Receive Date: 20131216
  Receipt Date: 20131216
  Transmission Date: 20140711
  Serious: No
  Sender: FDA-Public Use
  Company Number: US-PFIZER INC-2013357983

PATIENT
  Age: 50 Year
  Sex: Male
  Weight: 116 kg

DRUGS (5)
  1. NEURONTIN [Suspect]
     Indication: INTERVERTEBRAL DISC PROTRUSION
     Dosage: 300 MG, 3X/DAY
     Route: 048
     Dates: start: 201112, end: 20130420
  2. NEURONTIN [Suspect]
     Indication: NEURALGIA
  3. NEURONTIN [Suspect]
     Indication: SCIATICA
  4. LIPITOR [Concomitant]
     Indication: BLOOD CHOLESTEROL INCREASED
     Dosage: UNK
     Dates: end: 20130420
  5. ASACOL [Concomitant]
     Indication: COLITIS ULCERATIVE
     Dosage: UNK

REACTIONS (6)
  - Off label use [Not Recovered/Not Resolved]
  - Arthralgia [Not Recovered/Not Resolved]
  - Sciatica [Not Recovered/Not Resolved]
  - Gait disturbance [Not Recovered/Not Resolved]
  - Malaise [Not Recovered/Not Resolved]
  - Feeling abnormal [Not Recovered/Not Resolved]
